FAERS Safety Report 5264934-0 (Version None)
Quarter: 2007Q1

REPORT INFORMATION
  Report Type: 
  Country: None (occurrence: None)
  Receive Date: 20061122
  Receipt Date: 20060920
  Transmission Date: 20070707
  Serious: Yes (Hospitalization)
  Sender: FDA-Public Use
  Company Number: US-JNJFOC-20060905144

PATIENT
  Age: 34 Year
  Sex: Male
  Weight: 90.7194 kg

DRUGS (11)
  1. RISPERDAL CONSTA [Suspect]
     Indication: MILD MENTAL RETARDATION
     Dosage: 37.5 MG, 1 IN 2 WEEK, INTRA-MUSCULAR
     Route: 030
     Dates: start: 20050701, end: 20060818
  2. RISPERDAL CONSTA [Suspect]
     Indication: PSYCHOTIC DISORDER
     Dosage: 37.5 MG, 1 IN 2 WEEK, INTRA-MUSCULAR
     Route: 030
     Dates: start: 20050701, end: 20060818
  3. RISPERDAL CONSTA [Suspect]
     Indication: SCHIZOPHRENIA
     Dosage: 37.5 MG, 1 IN 2 WEEK, INTRA-MUSCULAR
     Route: 030
     Dates: start: 20050701, end: 20060818
  4. RISPERDAL [Suspect]
     Indication: MILD MENTAL RETARDATION
     Dosage: 3.5 MG, 1 IN 1 DAY, ORAL
     Route: 048
     Dates: start: 20050701, end: 20060811
  5. RISPERDAL [Suspect]
     Indication: PSYCHOTIC DISORDER
     Dosage: 3.5 MG, 1 IN 1 DAY, ORAL
     Route: 048
     Dates: start: 20050701, end: 20060811
  6. RISPERDAL [Suspect]
     Indication: SCHIZOPHRENIA
     Dosage: 3.5 MG, 1 IN 1 DAY, ORAL
     Route: 048
     Dates: start: 20050701, end: 20060811
  7. CLARITIN [Concomitant]
  8. COGENTIN [Concomitant]
  9. VISTARIL [Concomitant]
  10. LITHIUM CARBONATE [Concomitant]
  11. DILTIAZEM [Concomitant]

REACTIONS (7)
  - AKATHISIA [None]
  - ANXIETY [None]
  - EXTRAPYRAMIDAL DISORDER [None]
  - GAIT DISTURBANCE [None]
  - PANIC ATTACK [None]
  - PARANOIA [None]
  - THROAT TIGHTNESS [None]
